FAERS Safety Report 9287121 (Version 1)
Quarter: 2013Q2

REPORT INFORMATION
  Report Type: Spontaneous
  Country: DE (occurrence: DE)
  Receive Date: 20130513
  Receipt Date: 20130513
  Transmission Date: 20140414
  Serious: Yes (Other)
  Sender: FDA-Public Use
  Company Number: DE-PFIZER INC-2013143368

PATIENT
  Age: 82 Year
  Sex: Female

DRUGS (1)
  1. CYKLOKAPRON [Suspect]
     Indication: HAEMOSTASIS
     Dosage: 500 MG AT END OF OPERATION AND APPROX. 2 H AFTER OPERATION
     Dates: start: 2013

REACTIONS (2)
  - Renal failure acute [Unknown]
  - Off label use [Unknown]
